FAERS Safety Report 7321463-8 (Version None)
Quarter: 2011Q1

REPORT INFORMATION
  Report Type: 
  Country: None (occurrence: None)
  Receive Date: 20110228
  Receipt Date: 20100518
  Transmission Date: 20110831
  Serious: Yes (Other)
  Sender: FDA-Public Use
  Company Number: US-PFIZER INC-2010044147

PATIENT
  Sex: Female
  Weight: 81.633 kg

DRUGS (7)
  1. GEODON [Suspect]
     Indication: BIPOLAR DISORDER
     Dosage: 400 MG, 1X/DAY
     Dates: start: 20100308
  2. SEROQUEL [Concomitant]
     Dosage: UNK
     Dates: start: 20060101
  3. SIMVASTATIN/NIACIN [Concomitant]
     Dosage: 500/20, TWO TABLETS A DAY
  4. BUPROPION [Concomitant]
     Dosage: 200 MG, 2X/DAY
  5. SYNTHROID [Concomitant]
     Dosage: 0.15 MG, 1X/DAY
  6. LAMICTAL [Concomitant]
     Dosage: 200 MG, 1X/DAY
  7. CLONAZEPAM [Concomitant]
     Dosage: UNK

REACTIONS (5)
  - DIABETES MELLITUS [None]
  - WHITE BLOOD CELL COUNT DECREASED [None]
  - BLOOD GLUCOSE INCREASED [None]
  - OVERWEIGHT [None]
  - URINE KETONE BODY PRESENT [None]
